FAERS Safety Report 17763509 (Version 1)
Quarter: 2020Q2

REPORT INFORMATION
  Report Type: Spontaneous
  Country: ES (occurrence: ES)
  Receive Date: 20200509
  Receipt Date: 20200509
  Transmission Date: 20200714
  Serious: Yes (Other)
  Sender: FDA-Public Use
  Company Number: ES-TEVA-2020-ES-1232933

PATIENT
  Age: 78 Year
  Sex: Male
  Weight: 75 kg

DRUGS (14)
  1. CORTIC -  CORTICOIDE [Concomitant]
     Indication: CORONAVIRUS INFECTION
     Dosage: LOW DOSE CORTICOIDS
     Route: 065
     Dates: start: 20200328
  2. AZITROMICINA (7019A) [Suspect]
     Active Substance: AZITHROMYCIN
     Indication: CORONAVIRUS INFECTION
     Dosage: NOT SPECIFIED
     Route: 065
     Dates: start: 2020
  3. PROPOFOL. [Suspect]
     Active Substance: PROPOFOL
     Indication: ANALGESIC THERAPY
     Route: 065
     Dates: start: 20200328
  4. PROPOFOL. [Suspect]
     Active Substance: PROPOFOL
     Indication: CORONAVIRUS INFECTION
  5. KALETRA [Suspect]
     Active Substance: LOPINAVIR\RITONAVIR
     Indication: CORONAVIRUS INFECTION
     Route: 048
     Dates: start: 20200330
  6. OMNIC OCAS 0,4 MG COMPRIMIDOS DE LIBERACION PROLONGADA RECUBIERTOS CON [Concomitant]
  7. KALPRESS 160 MG COMPRIMIDOS RECUBIERTOS CON PELICULA, 28 COMPRIMIDOS ( [Concomitant]
  8. DOLQUINE 200 MG COMPRIMIDOS RECUBIERTOS [Suspect]
     Active Substance: HYDROXYCHLOROQUINE SULFATE
     Indication: CORONAVIRUS INFECTION
     Dosage: A COMPRESSED BREAKFAST AND DINNER?200 MILLIGRAM
     Route: 048
     Dates: start: 20200328, end: 20200331
  9. MIDAZOLAM (2256A) [Suspect]
     Active Substance: MIDAZOLAM
     Indication: CORONAVIRUS INFECTION
     Route: 065
     Dates: start: 20200328
  10. MIDAZOLAM (2256A) [Suspect]
     Active Substance: MIDAZOLAM
     Indication: ANALGESIC THERAPY
  11. MANIDON HTA 240 MG COMPRIMIDOS DE LIBERACION PROLONGADA, 30 COMPRIMIDO [Concomitant]
  12. SIMVASTATINA 20 MG 28 COMPRIMIDOS [Concomitant]
     Active Substance: SIMVASTATIN
  13. CEFTRIAXONA (501A) [Suspect]
     Active Substance: CEFTRIAXONE
     Indication: CORONAVIRUS INFECTION
     Dosage: NOT SPECIFIED
     Route: 065
     Dates: start: 2020
  14. RILAST TURBUHALER 160 MICROGRAMOS/4,5 MICROGRAMOS/INHALACION  POLVO PA [Concomitant]

REACTIONS (2)
  - Bradycardia [Recovered/Resolved]
  - Long QT syndrome [Recovered/Resolved]

NARRATIVE: CASE EVENT DATE: 20200331
